FAERS Safety Report 7579886 (Version 4)
Quarter: 2013Q2

REPORT INFORMATION
  Report Type: Spontaneous
  Country: US (occurrence: US)
  Receive Date: 20100910
  Receipt Date: 20130617
  Transmission Date: 20140414
  Serious: Yes (Death, Other)
  Sender: FDA-Public Use
  Company Number: US-JNJFOC-20100900216

PATIENT
  Age: 72 Year
  Sex: Female

DRUGS (1)
  1. STELARA [Suspect]
     Indication: PSORIASIS
     Dosage: 3 DOSES TO DATE.
     Route: 058
     Dates: start: 20091130, end: 20100706

REACTIONS (6)
  - Sepsis [Fatal]
  - Myocardial infarction [Fatal]
  - Arteriosclerosis [Unknown]
  - Intestinal obstruction [Unknown]
  - Urinary tract infection [Unknown]
  - Haematochezia [Unknown]
